FAERS Safety Report 10946397 (Version 2)
Quarter: 2015Q2

REPORT INFORMATION
  Report Type: Spontaneous
  Country: US (occurrence: US)
  Receive Date: 20150323
  Receipt Date: 20150512
  Transmission Date: 20150821
  Serious: Yes (Other)
  Sender: FDA-Public Use
  Company Number: US-BAYER-2015-062074

PATIENT
  Age: 28 Year
  Sex: Female
  Weight: 68.48 kg

DRUGS (1)
  1. SKYLA [Suspect]
     Active Substance: LEVONORGESTREL
     Indication: CONTRACEPTION
     Dosage: 14 MCG/24HR, CONT
     Route: 015
     Dates: start: 20140625

REACTIONS (6)
  - Drug ineffective [None]
  - Pregnancy with contraceptive device [None]
  - Embedded device [None]
  - Preterm premature rupture of membranes [None]
  - Amniorrhoea [None]
  - Haemorrhage in pregnancy [None]

NARRATIVE: CASE EVENT DATE: 201412
